FAERS Safety Report 5122407-X (Version None)
Quarter: 2006Q4

REPORT INFORMATION
  Report Type: 
  Country: None (occurrence: None)
  Receive Date: 20061004
  Receipt Date: 20060919
  Transmission Date: 20070319
  Serious: Yes (Death, Life-Threatening, Hospitalization)
  Sender: FDA-Public Use
  Company Number: 2006US002080

PATIENT
  Age: 58 Year
  Sex: Male
  Weight: 90.7 kg

DRUGS (11)
  1. ADENOSCAN [Suspect]
     Indication: SCAN MYOCARDIAL PERFUSION
     Dosage: 51 MG, TOTAL DOSE, IV NOS
     Route: 042
     Dates: start: 20060915, end: 20060915
  2. CARDIOLITE [Concomitant]
  3. ALBUTEROL (SALBUTAMOL SULFATE) [Concomitant]
  4. ALTACE [Concomitant]
  5. PLAVIX [Concomitant]
  6. METOPROLOL TARTRATE [Concomitant]
  7. ZOCOR [Concomitant]
  8. PREDNISONE TAB [Concomitant]
  9. SPIRIVA [Concomitant]
  10. COUMADIN [Concomitant]
  11. EFFEXOR [Concomitant]

REACTIONS (4)
  - ASTHMA [None]
  - CARDIAC ARREST [None]
  - LOSS OF CONSCIOUSNESS [None]
  - RESPIRATORY DISTRESS [None]
